FAERS Safety Report 4491455-5 (Version None)
Quarter: 2004Q4

REPORT INFORMATION
  Report Type: 
  Country: None (occurrence: None)
  Receive Date: 20041102
  Receipt Date: 20040929
  Transmission Date: 20050328
  Serious: Yes (Other)
  Sender: FDA-Public Use
  Company Number: 2004S1002916

PATIENT
  Age: 79 Year
  Sex: Female

DRUGS (7)
  1. LOVASTATIN [Suspect]
     Dosage: 20MG HS, ORAL
     Route: 048
     Dates: start: 20040918, end: 20040921
  2. LEVOFLOXACIN [Concomitant]
  3. ATENOLOL [Concomitant]
  4. FELODIPINE [Concomitant]
  5. TELMISARTAN [Concomitant]
  6. HYDROCHLOROTHIAZIDE [Concomitant]
  7. ROSIGLITAZONE MALEATE [Concomitant]

REACTIONS (4)
  - ABNORMAL DREAMS [None]
  - HYPERHIDROSIS [None]
  - INSOMNIA [None]
  - NIGHTMARE [None]
